FAERS Safety Report 9390896 (Version 1)
Quarter: 2013Q3

REPORT INFORMATION
  Report Type: Spontaneous
  Country: US (occurrence: None)
  Receive Date: 20130705
  Receipt Date: 20130705
  Transmission Date: 20140515
  Serious: Yes (Hospitalization)
  Sender: FDA-Public Use
  Company Number: None

PATIENT
  Age: 62 Year
  Sex: Female
  Weight: 57.15 kg

DRUGS (9)
  1. PEGASYS [Suspect]
     Indication: HEPATITIS C
     Route: 058
     Dates: start: 20130606
  2. RIBAPAK [Suspect]
     Indication: HEPATITIS C
     Route: 048
     Dates: start: 20130607
  3. CALCIUM [Concomitant]
  4. DICYCLOMINE [Concomitant]
  5. KEFLEX [Concomitant]
  6. LYSINE [Concomitant]
  7. MVI [Concomitant]
  8. POTASSIUM [Concomitant]
  9. VITAMIN B [Concomitant]

REACTIONS (8)
  - Headache [None]
  - Musculoskeletal pain [None]
  - Influenza like illness [None]
  - Injection site rash [None]
  - Dyspnoea [None]
  - Movement disorder [None]
  - Herpes zoster [None]
  - Inflammation [None]
